FAERS Safety Report 23156020 (Version 5)
Quarter: 2025Q1

REPORT INFORMATION
  Report Type: Spontaneous
  Country: US (occurrence: US)
  Receive Date: 20231107
  Receipt Date: 20250113
  Transmission Date: 20250409
  Serious: Yes (Hospitalization)
  Sender: PFIZER
  Company Number: US-PFIZER INC-PV202300182105

PATIENT
  Age: 64 Year
  Sex: Male
  Weight: 84.82 kg

DRUGS (13)
  1. VYNDAMAX [Suspect]
     Active Substance: TAFAMIDIS
     Indication: Cardiac amyloidosis
     Dosage: ONE 61 MG TAFAMIDIS CAPSULE ORALLY ONCE DAILY
     Route: 048
     Dates: start: 202305
  2. LEVOTHYROXINE [Concomitant]
     Active Substance: LEVOTHYROXINE
     Dates: start: 2004
  3. CYTOMEL [Concomitant]
     Active Substance: LIOTHYRONINE SODIUM
     Dates: start: 2012
  4. TORSEMIDE [Concomitant]
     Active Substance: TORSEMIDE
     Dates: start: 2018
  5. ELIQUIS [Concomitant]
     Active Substance: APIXABAN
     Dates: start: 202310
  6. FOLIC ACID [Concomitant]
     Active Substance: FOLIC ACID
     Dates: start: 2021
  7. POTASSIUM [Concomitant]
     Active Substance: POTASSIUM
     Dates: start: 2019
  8. COLCHICINE [Concomitant]
     Active Substance: COLCHICINE
     Dates: start: 202310
  9. CRESTOR [Concomitant]
     Active Substance: ROSUVASTATIN CALCIUM
     Dates: start: 2016
  10. XARELTO [Concomitant]
     Active Substance: RIVAROXABAN
     Dates: start: 2020
  11. VALSARTAN [Concomitant]
     Active Substance: VALSARTAN
     Dates: start: 2022
  12. CHOLECALCIFEROL [Concomitant]
     Active Substance: CHOLECALCIFEROL
     Dates: start: 2020
  13. ROSUVASTATIN [Concomitant]
     Active Substance: ROSUVASTATIN

REACTIONS (2)
  - Pleural effusion [Recovered/Resolved]
  - Cough [Recovered/Resolved]

NARRATIVE: CASE EVENT DATE: 20231011
